FAERS Safety Report 21626988 (Version 1)
Quarter: 2022Q4

REPORT INFORMATION
  Report Type: Report from Study
  Country: ZA (occurrence: ZA)
  Receive Date: 20221122
  Receipt Date: 20221122
  Transmission Date: 20230112
  Serious: Yes (Hospitalization)
  Sender: FDA-Public Use
  Company Number: ZA-002147023-NVSC2022ZA260240

PATIENT
  Age: 79 Year
  Sex: Female

DRUGS (4)
  1. SACUBITRIL\VALSARTAN [Suspect]
     Active Substance: SACUBITRIL\VALSARTAN
     Indication: Cardiac failure
     Dosage: 50 MG, BID
     Route: 048
  2. CARVEDILOL [Concomitant]
     Active Substance: CARVEDILOL
     Indication: Blood pressure abnormal
     Dosage: 3.128 MG, BID
     Route: 065
  3. SPIRACTIN [Concomitant]
     Indication: Product used for unknown indication
     Dosage: 12.5 MG
     Route: 048
  4. LASIX [Concomitant]
     Active Substance: FUROSEMIDE
     Indication: Product used for unknown indication
     Dosage: 40 MG, BID
     Route: 048

REACTIONS (9)
  - Gastrointestinal haemorrhage [Unknown]
  - Cardiac failure chronic [Recovered/Resolved]
  - Dyspnoea [Unknown]
  - Orthopnoea [Unknown]
  - Fatigue [Unknown]
  - Oedema peripheral [Unknown]
  - Pulmonary oedema [Unknown]
  - Localised oedema [Unknown]
  - Angina unstable [Unknown]

NARRATIVE: CASE EVENT DATE: 20220902
